FAERS Safety Report 4527088-1 (Version None)
Quarter: 2004Q4

REPORT INFORMATION
  Report Type: 
  Country: None (occurrence: None)
  Receive Date: 20041129
  Receipt Date: 20030508
  Transmission Date: 20050328
  Serious: Yes (Hospitalization)
  Sender: FDA-Public Use
  Company Number: USA030536639

PATIENT
  Age: 33 Year
  Sex: Male
  Weight: 114 kg

DRUGS (3)
  1. ZYPREXA [Suspect]
     Indication: ANTIDEPRESSANT THERAPY
     Dosage: 10 MG/DAY
     Dates: start: 20000101, end: 20030401
  2. METFORMIN HCL [Concomitant]
  3. UNKNOWN DIABETES MEDICATION [Concomitant]

REACTIONS (3)
  - BLOOD GLUCOSE INCREASED [None]
  - DEPRESSION [None]
  - WEIGHT INCREASED [None]
